FAERS Safety Report 5303904-0 (Version None)
Quarter: 2007Q1

REPORT INFORMATION
  Report Type: 
  Country: None (occurrence: None)
  Receive Date: 20070201
  Receipt Date: 20061120
  Transmission Date: 20070707
  Serious: No
  Sender: FDA-Public Use
  Company Number: 2006PV025561

PATIENT
  Age: 53 Year
  Sex: Female
  Weight: 121.1104 kg

DRUGS (9)
  1. BYETTA [Suspect]
     Indication: DIABETES MELLITUS NON-INSULIN-DEPENDENT
     Dosage: 5 MCG;BID;SC
     Route: 058
     Dates: start: 20060701, end: 20060101
  2. GLUCOPHAGE [Concomitant]
  3. AVANDIA [Concomitant]
  4. GLUCOTROL XL [Concomitant]
  5. LIPITOR [Concomitant]
  6. NEURONTIN [Concomitant]
  7. LASIX [Concomitant]
  8. ASPIRIN [Concomitant]
  9. AMITRIPTYLINE HCL [Concomitant]

REACTIONS (6)
  - BLOOD GLUCOSE DECREASED [None]
  - CARDIOMEGALY [None]
  - DYSPNOEA EXERTIONAL [None]
  - EJECTION FRACTION DECREASED [None]
  - HEART RATE INCREASED [None]
  - WEIGHT DECREASED [None]
